FAERS Safety Report 24093146 (Version 3)
Quarter: 2025Q1

REPORT INFORMATION
  Report Type: Spontaneous
  Country: US (occurrence: US)
  Receive Date: 20240715
  Receipt Date: 20250218
  Transmission Date: 20250408
  Serious: No
  Sender: MYLAN
  Company Number: US-MYLANLABS-2024M1064720

PATIENT
  Age: 66 Year
  Sex: Female
  Weight: 53.07 kg

DRUGS (4)
  1. TYRVAYA [Suspect]
     Active Substance: VARENICLINE TARTRATE
     Indication: Dry eye
     Dosage: 0.03 MILLIGRAM, QD (SPRAYED ONCE IN EACH NOSTRIL)
     Route: 045
  2. TYRVAYA [Suspect]
     Active Substance: VARENICLINE TARTRATE
     Dosage: 0.03 MILLIGRAM, BID (TWICE DAILY)
     Route: 045
     Dates: start: 20240706, end: 20240815
  3. TYRVAYA [Suspect]
     Active Substance: VARENICLINE TARTRATE
     Route: 045
     Dates: start: 20250205
  4. IRON [Concomitant]
     Active Substance: IRON
     Indication: Haemoglobin decreased
     Route: 065

REACTIONS (6)
  - Rhinorrhoea [Not Recovered/Not Resolved]
  - Nasal congestion [Recovered/Resolved]
  - Nasal discomfort [Not Recovered/Not Resolved]
  - Sneezing [Unknown]
  - Circumstance or information capable of leading to medication error [Unknown]
  - Product confusion [Unknown]

NARRATIVE: CASE EVENT DATE: 20240706
